FAERS Safety Report 9468476 (Version 2)
Quarter: 2013Q3

REPORT INFORMATION
  Report Type: Spontaneous
  Country: US (occurrence: US)
  Receive Date: 20130821
  Receipt Date: 20130910
  Transmission Date: 20140515
  Serious: No
  Sender: FDA-Public Use
  Company Number: US-PFIZER INC-2013237937

PATIENT
  Age: 11 Year
  Sex: Male
  Weight: 34.47 kg

DRUGS (3)
  1. GENOTROPIN [Suspect]
     Indication: BODY HEIGHT BELOW NORMAL
     Dosage: 1.6 MG, 1X/DAY
     Route: 058
     Dates: start: 20130812
  2. GENOTROPIN [Suspect]
     Indication: GROWTH RETARDATION
  3. CETIRIZINE [Concomitant]
     Indication: ASTHMA
     Dosage: UNK

REACTIONS (2)
  - Headache [Recovered/Resolved]
  - Abdominal pain upper [Recovered/Resolved]
